FAERS Safety Report 8408370-4 (Version None)
Quarter: 2012Q2

REPORT INFORMATION
  Report Type: 
  Country: None (occurrence: None)
  Receive Date: 20120531
  Receipt Date: 20120531
  Transmission Date: 20120825
  Serious: Yes (Life-Threatening)
  Sender: FDA-Public Use
  Company Number: None

PATIENT
  Age: 75 Year
  Sex: Female
  Weight: 75.2971 kg

DRUGS (1)
  1. LEVOTHYROXINE SODIUM [Suspect]
     Dosage: 25 MCG 1 TAB DAILY
     Dates: start: 20111013, end: 20120323

REACTIONS (6)
  - DYSPNOEA [None]
  - HEADACHE [None]
  - DIZZINESS [None]
  - FATIGUE [None]
  - CHEST PAIN [None]
  - TREMOR [None]
